FAERS Safety Report 12111367 (Version 2)
Quarter: 2016Q2

REPORT INFORMATION
  Report Type: Report from Study
  Country: US (occurrence: US)
  Receive Date: 20160224
  Receipt Date: 20160418
  Transmission Date: 20160815
  Serious: Yes (Disabling, Other)
  Sender: FDA-Public Use
  Company Number: US-REGENERON PHARMACEUTICALS, INC.-2016-12530

PATIENT

DRUGS (4)
  1. EYLEA [Suspect]
     Active Substance: AFLIBERCEPT
     Indication: NEOVASCULAR AGE-RELATED MACULAR DEGENERATION
     Dosage: 0.05 ML MILLILITRE(S), MONTHLY
     Route: 031
     Dates: start: 20150211, end: 20150826
  2. EYLEA [Suspect]
     Active Substance: AFLIBERCEPT
     Dosage: 0.05 ML MILLILITRE(S), SINGLE
     Route: 031
     Dates: start: 20150701, end: 20150701
  3. INDERAL [Concomitant]
     Active Substance: PROPRANOLOL HYDROCHLORIDE
     Indication: PRODUCT USED FOR UNKNOWN INDICATION
     Dosage: UNK
  4. EYLEA [Suspect]
     Active Substance: AFLIBERCEPT
     Dosage: UNK, EVERY OTHER MONTH, 2 INJECTIONS, OS
     Route: 031
     Dates: start: 20150826, end: 20150826

REACTIONS (2)
  - Blindness unilateral [Not Recovered/Not Resolved]
  - Dry age-related macular degeneration [Unknown]

NARRATIVE: CASE EVENT DATE: 201508
